FAERS Safety Report 13718077 (Version 4)
Quarter: 2017Q4

REPORT INFORMATION
  Report Type: Spontaneous
  Country: US (occurrence: US)
  Receive Date: 20170705
  Receipt Date: 20171109
  Transmission Date: 20180320
  Serious: Yes (Other)
  Sender: FDA-Public Use
  Company Number: US-JNJFOC-20170627895

PATIENT
  Sex: Male

DRUGS (10)
  1. RISPERDAL [Suspect]
     Active Substance: RISPERIDONE
     Indication: IMPULSIVE BEHAVIOUR
     Route: 048
     Dates: start: 20020909, end: 2005
  2. RISPERDAL [Suspect]
     Active Substance: RISPERIDONE
     Indication: IMPULSIVE BEHAVIOUR
     Dosage: 0.25 TO 0.5 MG
     Route: 048
     Dates: start: 20080807, end: 20140625
  3. RISPERDAL [Suspect]
     Active Substance: RISPERIDONE
     Indication: IMPULSIVE BEHAVIOUR
     Dosage: 0.25 TO 0.5
     Route: 048
     Dates: start: 2004, end: 2006
  4. RISPERDAL [Suspect]
     Active Substance: RISPERIDONE
     Indication: AGGRESSION
     Route: 048
     Dates: start: 20020909, end: 2005
  5. RISPERIDONE. [Suspect]
     Active Substance: RISPERIDONE
     Indication: AGGRESSION
     Dosage: 0.25 MG
     Route: 048
     Dates: start: 20080807, end: 20140625
  6. TRILEPTAL [Concomitant]
     Active Substance: OXCARBAZEPINE
     Indication: PRODUCT USED FOR UNKNOWN INDICATION
     Route: 065
     Dates: start: 2006, end: 2016
  7. RISPERDAL [Suspect]
     Active Substance: RISPERIDONE
     Indication: AGGRESSION
     Dosage: 0.25 TO 0.5
     Route: 048
     Dates: start: 2004, end: 2006
  8. RISPERDAL [Suspect]
     Active Substance: RISPERIDONE
     Indication: AGGRESSION
     Dosage: 0.25 TO 0.5 MG
     Route: 048
     Dates: start: 20080807, end: 20140625
  9. RISPERIDONE. [Suspect]
     Active Substance: RISPERIDONE
     Indication: PRODUCT USED FOR UNKNOWN INDICATION
     Route: 048
  10. RISPERIDONE. [Suspect]
     Active Substance: RISPERIDONE
     Indication: IMPULSIVE BEHAVIOUR
     Dosage: 0.25 MG
     Route: 048
     Dates: start: 20080807, end: 20140625

REACTIONS (5)
  - Gynaecomastia [Unknown]
  - Emotional disorder [Unknown]
  - Blood prolactin increased [Unknown]
  - Acanthosis nigricans [Unknown]
  - Obesity [Unknown]

NARRATIVE: CASE EVENT DATE: 2010
